FAERS Safety Report 10062019 (Version 2)
Quarter: 2014Q2

REPORT INFORMATION
  Report Type: Spontaneous
  Country: ES (occurrence: None)
  Receive Date: 20140403
  Receipt Date: 20140502
  Transmission Date: 20141212
  Serious: Yes (Other)
  Sender: FDA-Public Use
  Company Number: 7278721

PATIENT
  Sex: Female

DRUGS (5)
  1. THYROXINE [Suspect]
     Indication: PRODUCT USED FOR UNKNOWN INDICATION
  2. INSULIN [Suspect]
     Indication: PRODUCT USED FOR UNKNOWN INDICATION
  3. IODINE [Suspect]
     Indication: PRODUCT USED FOR UNKNOWN INDICATION
  4. PROPYLTHIOURACIL [Suspect]
     Indication: PRODUCT USED FOR UNKNOWN INDICATION
  5. METHIMAZOLE [Suspect]
     Indication: PRODUCT USED FOR UNKNOWN INDICATION

REACTIONS (8)
  - Gestational diabetes [None]
  - Type 1 diabetes mellitus [None]
  - Thyroid disorder [None]
  - Caesarean section [None]
  - Assisted delivery [None]
  - Obesity [None]
  - Hypertension [None]
  - Maternal exposure during pregnancy [None]
